FAERS Safety Report 24877341 (Version 2)
Quarter: 2025Q3

REPORT INFORMATION
  Report Type: Spontaneous
  Country: US (occurrence: US)
  Receive Date: 20250123
  Receipt Date: 20250809
  Transmission Date: 20251020
  Serious: Yes (Other)
  Sender: ALEXION PHARMACEUTICALS
  Company Number: US-AstraZeneca-CH-00788240AP

PATIENT
  Age: 75 Year
  Sex: Female
  Weight: 79.365 kg

DRUGS (2)
  1. BREZTRI [Suspect]
     Active Substance: BUDESONIDE\FORMOTEROL\GLYCOPYRROLATE
     Indication: Dyspnoea
     Dosage: 160 MICROGRAM, BID
     Dates: start: 20240408, end: 20250102
  2. BREZTRI [Suspect]
     Active Substance: BUDESONIDE\FORMOTEROL\GLYCOPYRROLATE
     Indication: Secretion discharge

REACTIONS (4)
  - Mouth ulceration [Recovering/Resolving]
  - Hypogeusia [Recovering/Resolving]
  - Administration site pain [Unknown]
  - Mouth haemorrhage [Recovering/Resolving]

NARRATIVE: CASE EVENT DATE: 20241103
